FAERS Safety Report 16043368 (Version 1)
Quarter: 2019Q1

REPORT INFORMATION
  Report Type: Spontaneous
  Country: JP (occurrence: JP)
  Receive Date: 20190306
  Receipt Date: 20190306
  Transmission Date: 20190418
  Serious: Yes (Other)
  Sender: FDA-Public Use
  Company Number: JP-JNJFOC-20190233904

PATIENT
  Age: 3 Decade
  Sex: Female

DRUGS (1)
  1. METHYLPHENIDATE HYDROCHLORIDE. [Suspect]
     Active Substance: METHYLPHENIDATE HYDROCHLORIDE
     Indication: PRODUCT USED FOR UNKNOWN INDICATION
     Route: 048

REACTIONS (8)
  - Nausea [Unknown]
  - Mental impairment [Unknown]
  - Dizziness [Unknown]
  - Oedema peripheral [Unknown]
  - Malaise [Unknown]
  - Fatigue [Unknown]
  - Pollakiuria [Unknown]
  - Tinnitus [Unknown]
